FAERS Safety Report 4929252-6 (Version None)
Quarter: 2006Q1

REPORT INFORMATION
  Report Type: 
  Country: None (occurrence: None)
  Receive Date: 20060130
  Receipt Date: 20051027
  Transmission Date: 20060701
  Serious: Yes (Hospitalization)
  Sender: FDA-Public Use
  Company Number: 05P-163-0312553-00

PATIENT
  Age: 23 Month
  Sex: Male
  Weight: 14.0615 kg

DRUGS (2)
  1. OMNICEF [Suspect]
     Indication: OTITIS MEDIA
     Dosage: 250 MG, 3/4 TEASPOON TWICE A DAY, PER ORAL
     Route: 048
     Dates: start: 20050917, end: 20050923
  2. IBUPROFEN [Concomitant]

REACTIONS (2)
  - PYREXIA [None]
  - STEVENS-JOHNSON SYNDROME [None]
